FAERS Safety Report 11719580 (Version 1)
Quarter: 2015Q4

REPORT INFORMATION
  Report Type: Other
  Country: US (occurrence: US)
  Receive Date: 20151110
  Receipt Date: 20151110
  Transmission Date: 20160304
  Serious: Yes (Other)
  Sender: FDA-Public Use
  Company Number: US-DEP_12978_2015

PATIENT
  Age: 87 Year
  Sex: Male
  Weight: 67 kg

DRUGS (2)
  1. GRALISE [Suspect]
     Active Substance: GABAPENTIN
     Route: 048
     Dates: start: 20151016, end: 20151017
  2. GRALISE [Suspect]
     Active Substance: GABAPENTIN
     Indication: NEURALGIA
     Route: 048
     Dates: start: 20151018, end: 2015

REACTIONS (8)
  - Off label use [Recovered/Resolved]
  - Limb injury [Recovered/Resolved]
  - Feeling abnormal [Recovered/Resolved]
  - Drug titration error [Recovered/Resolved]
  - Head injury [Recovered/Resolved]
  - Fall [Recovered/Resolved]
  - Loss of consciousness [Recovered/Resolved]
  - Asthenia [Recovered/Resolved]

NARRATIVE: CASE EVENT DATE: 20151016
